FAERS Safety Report 23997009 (Version 1)
Quarter: 2024Q2

REPORT INFORMATION
  Report Type: Report from Study
  Country: CA (occurrence: CA)
  Receive Date: 20240621
  Receipt Date: 20240621
  Transmission Date: 20240716
  Serious: Yes (Other)
  Sender: FDA-Public Use
  Company Number: CA-ABBVIE-5802687

PATIENT
  Sex: Male

DRUGS (1)
  1. SKYRIZI [Suspect]
     Active Substance: RISANKIZUMAB-RZAA
     Indication: Crohn^s disease
     Route: 058
     Dates: start: 20230529

REACTIONS (7)
  - Fibrosis [Unknown]
  - Emphysema [Unknown]
  - Crohn^s disease [Unknown]
  - Hepatitis C [Unknown]
  - Lymphadenopathy [Unknown]
  - Prostatomegaly [Unknown]
  - Pulmonary granuloma [Unknown]

NARRATIVE: CASE EVENT DATE: 20230911
